FAERS Safety Report 5828889-X (Version None)
Quarter: 2008Q3

REPORT INFORMATION
  Report Type: 
  Country: None (occurrence: None)
  Receive Date: 20080729
  Receipt Date: 20080715
  Transmission Date: 20090109
  Serious: Yes (Hospitalization)
  Sender: FDA-Public Use
  Company Number: 1000000175

PATIENT
  Age: 55 Year
  Sex: Male

DRUGS (6)
  1. ESCITALOPRAM [Suspect]
     Indication: DEPRESSION
     Dosage: 1 DOSAGE FORMS (1 DOSAGE FORMS, 1 IN 1 D), ORAL
     Route: 048
     Dates: start: 20080401, end: 20080401
  2. SINTROM [Concomitant]
  3. HEMIGOXINE [Concomitant]
  4. CORDARONE [Concomitant]
  5. LASIX [Concomitant]
  6. RAMIPRIL [Concomitant]

REACTIONS (6)
  - ACUTE PULMONARY OEDEMA [None]
  - ANAEMIA [None]
  - CARDIAC FAILURE [None]
  - EPISTAXIS [None]
  - HEART TRANSPLANT [None]
  - RESPIRATORY DISTRESS [None]
